FAERS Safety Report 23804113 (Version 2)
Quarter: 2024Q2

REPORT INFORMATION
  Report Type: Spontaneous
  Country: PT (occurrence: PT)
  Receive Date: 20240501
  Receipt Date: 20240515
  Transmission Date: 20240716
  Serious: Yes (Other)
  Sender: FDA-Public Use
  Company Number: PT-GILEAD-2024-0670918

PATIENT
  Age: 36 Year
  Sex: Female

DRUGS (1)
  1. SACITUZUMAB GOVITECAN-HZIY [Suspect]
     Active Substance: SACITUZUMAB GOVITECAN-HZIY
     Indication: Triple negative breast cancer
     Dosage: 10 MG/KG, Q3WK
     Route: 065
     Dates: start: 202203

REACTIONS (3)
  - Myelosuppression [Unknown]
  - Neutropenia [Unknown]
  - Ocular toxicity [Unknown]
